FAERS Safety Report 20655005 (Version 1)
Quarter: 2022Q1

REPORT INFORMATION
  Report Type: Spontaneous
  Country: CA (occurrence: CA)
  Receive Date: 20220330
  Receipt Date: 20220330
  Transmission Date: 20220423
  Serious: Yes (Other)
  Sender: FDA-Public Use
  Company Number: CA-JNJFOC-20220356054

PATIENT
  Age: 33 Year
  Sex: Female
  Weight: 148 kg

DRUGS (7)
  1. REMICADE [Suspect]
     Active Substance: INFLIXIMAB
     Indication: Colitis ulcerative
     Route: 042
  2. AMLODIPINE [Concomitant]
     Active Substance: AMLODIPINE BESYLATE
     Indication: Blood pressure abnormal
     Route: 065
  3. INS [Concomitant]
     Indication: Diabetes mellitus
     Dosage: GLOBULES ORAL
     Route: 048
  4. METFORMIN [Concomitant]
     Active Substance: METFORMIN HYDROCHLORIDE
     Indication: Diabetes mellitus
     Route: 065
  5. MESALAMINE [Concomitant]
     Active Substance: MESALAMINE
     Route: 065
  6. PANTOPRAZOLE [Concomitant]
     Active Substance: PANTOPRAZOLE
  7. PERINDOPRIL [Concomitant]
     Active Substance: PERINDOPRIL

REACTIONS (1)
  - Weight decreased [Unknown]
